FAERS Safety Report 7194729-2 (Version None)
Quarter: 2010Q4

REPORT INFORMATION
  Report Type: 
  Country: None (occurrence: None)
  Receive Date: 20101223
  Receipt Date: 20100916
  Transmission Date: 20110411
  Serious: No
  Sender: FDA-Public Use
  Company Number: US-AMGEN-TCS439108

PATIENT

DRUGS (1)
  1. ENBREL [Suspect]
     Indication: RHEUMATOID ARTHRITIS
     Dosage: 50 MG, QWK
     Route: 058
     Dates: start: 20100907

REACTIONS (6)
  - ASTHENIA [None]
  - DIARRHOEA [None]
  - MUSCLE TWITCHING [None]
  - PARAESTHESIA [None]
  - PYREXIA [None]
  - TREMOR [None]
